FAERS Safety Report 14026443 (Version 2)
Quarter: 2017Q4

REPORT INFORMATION
  Report Type: Report from Study
  Country: US (occurrence: US)
  Receive Date: 20170929
  Receipt Date: 20171026
  Transmission Date: 20180321
  Serious: Yes (Death)
  Sender: FDA-Public Use
  Company Number: US-ROCHE-1989679

PATIENT
  Age: 56 Year
  Sex: Male

DRUGS (12)
  1. LISINOPRIL. [Concomitant]
     Active Substance: LISINOPRIL
  2. MORPHINE [Concomitant]
     Active Substance: MORPHINE
     Route: 041
  3. LAMOTRIGINE. [Concomitant]
     Active Substance: LAMOTRIGINE
  4. BACLOFEN. [Concomitant]
     Active Substance: BACLOFEN
  5. LORAZEPAM. [Concomitant]
     Active Substance: LORAZEPAM
  6. ABILIFY [Concomitant]
     Active Substance: ARIPIPRAZOLE
  7. OXYCODONE [Concomitant]
     Active Substance: OXYCODONE
  8. PERCOCET [Concomitant]
     Active Substance: ACETAMINOPHEN\OXYCODONE HYDROCHLORIDE
     Route: 065
  9. SIMVASTATIN. [Concomitant]
     Active Substance: SIMVASTATIN
  10. OXYBUTYNIN. [Concomitant]
     Active Substance: OXYBUTYNIN CHLORIDE
  11. OCREVUS [Suspect]
     Active Substance: OCRELIZUMAB
     Indication: MULTIPLE SCLEROSIS
     Route: 065
     Dates: start: 201709
  12. TYSABRI [Concomitant]
     Active Substance: NATALIZUMAB

REACTIONS (1)
  - Sepsis [Fatal]

NARRATIVE: CASE EVENT DATE: 20170901
